FAERS Safety Report 9844954 (Version 1)
Quarter: 2014Q1

REPORT INFORMATION
  Report Type: Report from Study
  Country: JP (occurrence: JP)
  Receive Date: 20140127
  Receipt Date: 20140127
  Transmission Date: 20141002
  Serious: Yes (Death, Other)
  Sender: FDA-Public Use
  Company Number: JP-ROCHE-1334053

PATIENT
  Sex: 0

DRUGS (10)
  1. PEG-INTERFERON ALFA 2A [Suspect]
     Indication: HEPATITIS C
     Dosage: 45-180 MCG/WEEK
     Route: 065
  2. PEG-INTERFERON ALFA 2A [Suspect]
     Indication: HEPATIC CIRRHOSIS
  3. RIBAVIRIN [Suspect]
     Indication: HEPATITIS C
     Dosage: 600-1000 MG/DAY
     Route: 048
  4. RIBAVIRIN [Suspect]
     Indication: HEPATIC CIRRHOSIS
  5. PEGINTERFERON ALFA-2B [Suspect]
     Indication: HEPATITIS C
     Dosage: 1.5-1.0 MCG/KG BODY WEIGHT PER WEEK
     Route: 065
  6. PEGINTERFERON ALFA-2B [Suspect]
     Indication: HEPATIC CIRRHOSIS
  7. INTERFERON ALFA-2B [Suspect]
     Indication: HEPATITIS C
     Dosage: MEDIAN DOSE OF 6 MILLION UNITS EACH DAY (SEVEN TIMES PER WEEK FOR THE INITIAL 2 OR 4 WEEKS, FOLLOWED
     Route: 065
  8. INTERFERON ALFA-2B [Suspect]
     Indication: HEPATIC CIRRHOSIS
  9. INTERFERON BETA [Suspect]
     Indication: HEPATITIS C
     Dosage: MEDIAN DOSE OF 6 MILLION UNITS EACH DAY (SEVEN TIMES PER WEEK FOR THE INITIAL 2 OR 4 WEEKS, FOLLOWED
     Route: 065
  10. INTERFERON BETA [Suspect]
     Indication: HEPATIC CIRRHOSIS

REACTIONS (20)
  - Hepatic failure [Fatal]
  - Anaemia [Unknown]
  - Hepatocellular carcinoma [Unknown]
  - Thrombocytopenia [Unknown]
  - Leukopenia [Unknown]
  - Rash [Unknown]
  - Pruritus [Unknown]
  - Fatigue [Unknown]
  - Malaise [Unknown]
  - Gastrointestinal disorder [Unknown]
  - Depression [Unknown]
  - Respiratory disorder [Unknown]
  - Neoplasm malignant [Unknown]
  - Interstitial lung disease [Unknown]
  - Cerebral haemorrhage [Unknown]
  - Cerebral infarction [Unknown]
  - Cholangitis [Unknown]
  - Retinal haemorrhage [Unknown]
  - Diabetes mellitus [Unknown]
  - Palpitations [Unknown]
